FAERS Safety Report 6836603-4 (Version None)
Quarter: 2010Q3

REPORT INFORMATION
  Report Type: 
  Country: None (occurrence: None)
  Receive Date: 20100713
  Receipt Date: 20100701
  Transmission Date: 20110219
  Serious: Yes (Other)
  Sender: FDA-Public Use
  Company Number: PHHY2010IE22342

PATIENT
  Sex: Male
  Weight: 74 kg

DRUGS (2)
  1. CLOZARIL [Suspect]
     Indication: SCHIZOPHRENIA
     Dosage: 225 MG, UNK
     Dates: start: 20100322
  2. VALPROATE SODIUM [Concomitant]
     Indication: CONVULSION
     Dosage: 600 MG, UNK

REACTIONS (9)
  - BODY TEMPERATURE FLUCTUATION [None]
  - CHEST PAIN [None]
  - DYSPNOEA [None]
  - HIATUS HERNIA [None]
  - NEUTROPHIL COUNT INCREASED [None]
  - PLEURITIC PAIN [None]
  - TACHYCARDIA [None]
  - VOMITING [None]
  - WHITE BLOOD CELL COUNT INCREASED [None]
